FAERS Safety Report 6843429-4 (Version None)
Quarter: 2010Q3

REPORT INFORMATION
  Report Type: 
  Country: None (occurrence: None)
  Receive Date: 20100715
  Receipt Date: 20100706
  Transmission Date: 20110219
  Serious: Yes (Other)
  Sender: FDA-Public Use
  Company Number: JP-ASTRAZENECA-2010SE31338

PATIENT
  Sex: Female

DRUGS (3)
  1. PROPOFOL [Suspect]
     Indication: INDUCTION OF ANAESTHESIA
  2. FENTANYL [Suspect]
     Indication: INDUCTION OF ANAESTHESIA
  3. DOXAZOSIN [Concomitant]
     Indication: ADRENAL BLOCKADE THERAPY
     Dosage: UP TO 0.5 MG PER DAY

REACTIONS (1)
  - PROCEDURAL HYPOTENSION [None]
